FAERS Safety Report 9114638 (Version 1)
Quarter: 2013Q1

REPORT INFORMATION
  Report Type: Report from Study
  Country: JP (occurrence: JP)
  Receive Date: 20130128
  Receipt Date: 20130128
  Transmission Date: 20140127
  Serious: Yes (Life-Threatening, Hospitalization)
  Sender: FDA-Public Use
  Company Number: JP-ACTELION-A-CH2012-76256

PATIENT
  Age: 11 Year
  Sex: Female
  Weight: 32 kg

DRUGS (8)
  1. TRACLEER [Suspect]
     Indication: PULMONARY ARTERIAL HYPERTENSION
     Dosage: 125 MG, BID
     Route: 048
     Dates: start: 20101210, end: 20110630
  2. TRACLEER [Suspect]
     Dosage: 62.5 MG, BID
     Route: 048
     Dates: start: 20101126, end: 20101209
  3. BERAPROST SODIUM [Suspect]
     Indication: PULMONARY ARTERIAL HYPERTENSION
     Dosage: 120 ?G, QD
     Route: 048
     Dates: start: 20101217, end: 20110616
  4. WARFARIN POTASSIUM [Suspect]
     Indication: PULMONARY ARTERIAL HYPERTENSION
     Dosage: 1 MG, QD
     Route: 048
     Dates: start: 20101126, end: 20110301
  5. WARFARIN POTASSIUM [Suspect]
     Dosage: 1.5 MG, QD
     Route: 048
     Dates: start: 20110302, end: 20110421
  6. WARFARIN POTASSIUM [Suspect]
     Dosage: 2.5 MG, QD
     Route: 048
     Dates: start: 20110422, end: 20110609
  7. PIMOBENDAN [Concomitant]
  8. OXYGEN [Concomitant]

REACTIONS (4)
  - Haemoptysis [Recovered/Resolved]
  - Pneumonia [Recovered/Resolved]
  - Lung transplant [Unknown]
  - Drug effect incomplete [Unknown]
